FAERS Safety Report 17478580 (Version 2)
Quarter: 2020Q2

REPORT INFORMATION
  Report Type: Spontaneous
  Country: US (occurrence: US)
  Receive Date: 20200228
  Receipt Date: 20200407
  Transmission Date: 20200713
  Serious: Yes (Hospitalization)
  Sender: FDA-Public Use
  Company Number: US-LEXICON PHARMACEUTICALS, INC-20-1606-00155

PATIENT
  Age: 40 Year
  Sex: Female

DRUGS (19)
  1. XERMELO [Suspect]
     Active Substance: TELOTRISTAT ETHYL
     Indication: CARCINOID SYNDROME
  2. PANTOPRAZOLE SODIUM. [Concomitant]
     Active Substance: PANTOPRAZOLE SODIUM
  3. ADVANCED FORMULA EVENING [Concomitant]
  4. XERMELO [Suspect]
     Active Substance: TELOTRISTAT ETHYL
     Indication: CARCINOID TUMOUR OF THE SMALL BOWEL
     Dates: start: 20200117
  5. ATIVAN [Concomitant]
     Active Substance: LORAZEPAM
  6. BIOTIN [Concomitant]
     Active Substance: BIOTIN
  7. FISH OIL [Concomitant]
     Active Substance: FISH OIL
  8. MAGNESIUM [Concomitant]
     Active Substance: MAGNESIUM
  9. SOMATULINE DEPOT [Concomitant]
     Active Substance: LANREOTIDE ACETATE
  10. GABAPENTIN. [Concomitant]
     Active Substance: GABAPENTIN
  11. METOCLOPRAMIDE HYDROCHLORIDE. [Concomitant]
     Active Substance: METOCLOPRAMIDE HYDROCHLORIDE
  12. MIRALAX [Concomitant]
     Active Substance: POLYETHYLENE GLYCOL 3350
  13. SANDOSTATIN [Concomitant]
     Active Substance: OCTREOTIDE ACETATE
  14. LITHIUM CARBONATE ER [Concomitant]
     Active Substance: LITHIUM CARBONATE
  15. CREON [Concomitant]
     Active Substance: PANCRELIPASE AMYLASE\PANCRELIPASE LIPASE\PANCRELIPASE PROTEASE
  16. OXYBUTYNIN CHLORIDE. [Concomitant]
     Active Substance: OXYBUTYNIN CHLORIDE
  17. CALCIUM/VITAMIN D [Concomitant]
     Active Substance: CALCIUM\VITAMIN D
  18. CARAFATE [Concomitant]
     Active Substance: SUCRALFATE
  19. RITALIN [Concomitant]
     Active Substance: METHYLPHENIDATE HYDROCHLORIDE

REACTIONS (4)
  - Dyschezia [Unknown]
  - Constipation [Unknown]
  - Abdominal pain [Unknown]
  - Pain [Unknown]
